FAERS Safety Report 12283493 (Version 1)
Quarter: 2016Q2

REPORT INFORMATION
  Report Type: Spontaneous
  Country: US (occurrence: US)
  Receive Date: 20160419
  Receipt Date: 20160419
  Transmission Date: 20160815
  Serious: No
  Sender: FDA-Public Use
  Company Number: US-BANPHARM-20153728

PATIENT
  Age: 57 Year
  Sex: Female
  Weight: 90.72 kg

DRUGS (2)
  1. OXYCODONE [Suspect]
     Active Substance: OXYCODONE
     Dosage: DF 5 MG,
  2. ALEVE [Suspect]
     Active Substance: NAPROXEN SODIUM
     Indication: ARTHRALGIA
     Dosage: 1 DF, PRN,
     Route: 048
     Dates: start: 20150307, end: 20150308

REACTIONS (3)
  - Gastrointestinal pain [Recovered/Resolved]
  - Drug ineffective [Unknown]
  - Abdominal pain [Unknown]

NARRATIVE: CASE EVENT DATE: 20150307
